FAERS Safety Report 23102956 (Version 2)
Quarter: 2023Q4

REPORT INFORMATION
  Report Type: Spontaneous
  Country: CA (occurrence: None)
  Receive Date: 20231025
  Receipt Date: 20231229
  Transmission Date: 20240110
  Serious: Yes (Other)
  Sender: FDA-Public Use
  Company Number: CA-PFIZER INC-202300309290

PATIENT
  Age: 52 Year
  Sex: Female

DRUGS (3)
  1. METHOTREXATE [Suspect]
     Active Substance: METHOTREXATE
     Indication: Rheumatoid arthritis
     Dates: end: 202312
  2. ABRILADA [Concomitant]
     Active Substance: ADALIMUMAB-AFZB
     Indication: Rheumatoid arthritis
     Dosage: EVERY 2 WEEKS, PREFILLED PEN, 1ST DOSE;?ONGOING
     Dates: start: 20230921
  3. FOLIC ACID [Concomitant]
     Active Substance: FOLIC ACID
     Dosage: ONGOING

REACTIONS (4)
  - Autoimmune disorder [Unknown]
  - Rash [Not Recovered/Not Resolved]
  - Pain [Not Recovered/Not Resolved]
  - Condition aggravated [Not Recovered/Not Resolved]
